FAERS Safety Report 26150794 (Version 1)
Quarter: 2025Q4

REPORT INFORMATION
  Report Type: Report from Study
  Country: US (occurrence: US)
  Receive Date: 20251212
  Receipt Date: 20251212
  Transmission Date: 20260119
  Serious: Yes (Hospitalization)
  Sender: BIOGEN
  Company Number: US-BIOGEN-2094818

PATIENT
  Age: 47 Year
  Sex: Female

DRUGS (2)
  1. VUMERITY [Suspect]
     Active Substance: DIROXIMEL FUMARATE
     Indication: Multiple sclerosis
     Dosage: 231MG, 2 PILLS TWICE A DAY
     Dates: start: 20251120
  2. VUMERITY [Suspect]
     Active Substance: DIROXIMEL FUMARATE

REACTIONS (3)
  - Nephrolithiasis [Not Recovered/Not Resolved]
  - Feeding disorder [Unknown]
  - Nausea [Unknown]

NARRATIVE: CASE EVENT DATE: 20251116
